FAERS Safety Report 6550939-6 (Version None)
Quarter: 2010Q1

REPORT INFORMATION
  Report Type: 
  Country: None (occurrence: None)
  Receive Date: 20100125
  Receipt Date: 20100120
  Transmission Date: 20100710
  Serious: Yes (Other)
  Sender: FDA-Public Use
  Company Number: TW-ROXANE LABORATORIES, INC.-2010-RO-00072RO

PATIENT
  Age: 47 Year
  Sex: Female

DRUGS (3)
  1. CYCLOPHOSPHAMIDE [Suspect]
     Indication: BREAST CANCER
     Dates: start: 20050105, end: 20050422
  2. TAXOTERE [Suspect]
     Indication: BREAST CANCER
     Dates: start: 20050105, end: 20050422
  3. EPIRUBICIN [Suspect]
     Indication: BREAST CANCER
     Dates: start: 20050105, end: 20050422

REACTIONS (1)
  - TUMOUR FLARE [None]
